FAERS Safety Report 25668521 (Version 1)
Quarter: 2025Q3

REPORT INFORMATION
  Report Type: Other
  Country: GB (occurrence: GB)
  Receive Date: 20250812
  Receipt Date: 20250812
  Transmission Date: 20251021
  Serious: Yes (Life-Threatening, Hospitalization, Disabling, Other)
  Sender: LUPIN
  Company Number: None

PATIENT
  Age: 60 Year
  Weight: 87 kg

DRUGS (1)
  1. SERTRALINE [Suspect]
     Active Substance: SERTRALINE HYDROCHLORIDE
     Indication: Anxiety
     Dosage: 100 MILLIGRAM, QD (IN MORNING)
     Route: 065

REACTIONS (1)
  - Nightmare [Not Recovered/Not Resolved]
